FAERS Safety Report 23979680 (Version 1)
Quarter: 2024Q2

REPORT INFORMATION
  Report Type: Spontaneous
  Country: US (occurrence: US)
  Receive Date: 20240616
  Receipt Date: 20240616
  Transmission Date: 20240716
  Serious: No
  Sender: FDA-Public Use
  Company Number: US-ELI_LILLY_AND_COMPANY-US202406009790

PATIENT
  Age: 75 Year
  Sex: Female

DRUGS (3)
  1. FORTEO [Interacting]
     Active Substance: TERIPARATIDE
     Indication: Osteoporosis
     Dosage: 20 UG, DAILY
     Route: 058
  2. MECLIZINE [Interacting]
     Active Substance: MECLIZINE HYDROCHLORIDE
     Indication: Product used for unknown indication
     Dosage: UNK UNK, UNKNOWN
     Route: 065
  3. ASPIRIN [Interacting]
     Active Substance: ASPIRIN
     Indication: Pain
     Dosage: UNK UNK, UNKNOWN
     Route: 065

REACTIONS (2)
  - Fracture [Unknown]
  - Drug interaction [Unknown]
